FAERS Safety Report 17376596 (Version 1)
Quarter: 2020Q1

REPORT INFORMATION
  Report Type: Report from Study
  Country: FR (occurrence: FR)
  Receive Date: 20200206
  Receipt Date: 20200206
  Transmission Date: 20200409
  Serious: Yes (Hospitalization, Other)
  Sender: FDA-Public Use
  Company Number: FR-TEVA-2020-FR-1181601

PATIENT
  Age: 68 Year
  Sex: Female
  Weight: 83 kg

DRUGS (30)
  1. STELARA [Suspect]
     Active Substance: USTEKINUMAB
     Dosage: 90 MG PER 8 WEEKS
     Route: 058
     Dates: start: 20180126, end: 201802
  2. STELARA [Suspect]
     Active Substance: USTEKINUMAB
     Dosage: 90 MG PER WEEK
     Route: 058
     Dates: start: 20170728, end: 20170828
  3. REMICADE [Suspect]
     Active Substance: INFLIXIMAB
     Indication: PSORIASIS
     Dosage: 400 MG PER 8 WEEKS
     Route: 042
     Dates: start: 20160704, end: 20160704
  4. ACITRETIN. [Suspect]
     Active Substance: ACITRETIN
     Dosage: 10 MG PER DAY
     Dates: start: 20170728, end: 20180126
  5. CICLOSPORINE [Suspect]
     Active Substance: CYCLOSPORINE
     Indication: PRODUCT USED FOR UNKNOWN INDICATION
     Dosage: 15 MG PER WEEK
     Route: 058
     Dates: start: 20180323
  6. STELARA [Suspect]
     Active Substance: USTEKINUMAB
     Indication: PRODUCT USED FOR UNKNOWN INDICATION
     Dosage: 90 MG PER 10 WEEKS
     Route: 058
     Dates: start: 20171027, end: 20180126
  7. DERMOVAL [Concomitant]
     Route: 065
     Dates: start: 20180717
  8. STRESAM [Concomitant]
     Active Substance: ETIFOXINE
     Route: 065
     Dates: start: 20180123
  9. ACITRETIN. [Suspect]
     Active Substance: ACITRETIN
     Dosage: 25 MG PER DAY
     Route: 048
     Dates: start: 20160704, end: 20160809
  10. ACITRETIN. [Suspect]
     Active Substance: ACITRETIN
     Route: 048
     Dates: start: 2009, end: 2009
  11. REMICADE [Suspect]
     Active Substance: INFLIXIMAB
     Dosage: 420 MG PER 8 WEEKS
     Route: 042
     Dates: start: 20150529, end: 20151126
  12. STELARA [Suspect]
     Active Substance: USTEKINUMAB
     Dosage: 90 MG PER 12 WEKKS
     Route: 058
     Dates: start: 20170828, end: 20171027
  13. ACITRETIN. [Suspect]
     Active Substance: ACITRETIN
     Indication: PRODUCT USED FOR UNKNOWN INDICATION
     Dosage: 20 MG PER DAY
     Route: 048
     Dates: start: 20180126, end: 20180323
  14. NOROXINE [Concomitant]
     Active Substance: NORFLOXACIN
     Indication: PRODUCT USED FOR UNKNOWN INDICATION
     Route: 065
     Dates: start: 20160114, end: 20160201
  15. DERMOVAL [Concomitant]
     Indication: PRODUCT USED FOR UNKNOWN INDICATION
     Route: 065
     Dates: start: 20150408
  16. REMICADE [Suspect]
     Active Substance: INFLIXIMAB
     Dosage: 415 MG PER 8 WEEKS
     Route: 042
     Dates: start: 20160202, end: 20160325
  17. COSENTYX [Suspect]
     Active Substance: SECUKINUMAB
     Dosage: 300 MG PER 4 WEEKS
     Route: 058
     Dates: start: 20161007, end: 201701
  18. HUMIRA [Suspect]
     Active Substance: ADALIMUMAB
     Dosage: 40 MG PER 2 WEEKS
     Route: 058
     Dates: start: 20170303, end: 20170602
  19. KARDEGIC [Concomitant]
     Active Substance: ASPIRIN DL-LYSINE
     Route: 065
     Dates: start: 20130620
  20. CERAT INALTERABLE [Concomitant]
     Route: 065
     Dates: start: 20180717
  21. HUMIRA [Suspect]
     Active Substance: ADALIMUMAB
     Dosage: 40 MG PER WEEK
     Route: 058
     Dates: start: 20170602, end: 20170728
  22. NERISONE [Concomitant]
     Active Substance: DIFLUCORTOLONE VALERATE
     Route: 065
     Dates: start: 20180323, end: 20180423
  23. GLYCEROTONE [Concomitant]
     Route: 065
     Dates: start: 20180323
  24. BETNEVAL [Concomitant]
     Active Substance: BETAMETHASONE VALERATE
     Indication: PRODUCT USED FOR UNKNOWN INDICATION
     Route: 065
     Dates: start: 20150408
  25. REMICADE [Suspect]
     Active Substance: INFLIXIMAB
     Dosage: 420 MG PER 7 WEEKS
     Route: 042
     Dates: start: 20151126
  26. COSENTYX [Suspect]
     Active Substance: SECUKINUMAB
     Indication: PRODUCT USED FOR UNKNOWN INDICATION
     Dosage: 300 MG PER 1 WEEK
     Route: 058
     Dates: start: 20160830, end: 20161007
  27. HUMIRA [Suspect]
     Active Substance: ADALIMUMAB
     Indication: PRODUCT USED FOR UNKNOWN INDICATION
     Dosage: 80 MG PER WEEK
     Route: 058
     Dates: start: 20170224, end: 20170303
  28. DAIVOBET [Concomitant]
     Active Substance: BETAMETHASONE DIPROPIONATE\CALCIPOTRIENE
     Route: 065
     Dates: start: 20151126
  29. LOCAPRED [Concomitant]
     Active Substance: DESONIDE
     Route: 065
     Dates: start: 20180323
  30. FLECAINE [Concomitant]
     Active Substance: FLECAINIDE
     Route: 065
     Dates: start: 20170728

REACTIONS (7)
  - Off label use [Unknown]
  - Cutaneous T-cell lymphoma [Not Recovered/Not Resolved]
  - Urinary tract infection [Recovered/Resolved]
  - Haemorrhoids [Recovered/Resolved]
  - Psoriasis [Not Recovered/Not Resolved]
  - Drug ineffective [Unknown]
  - Product use issue [Unknown]

NARRATIVE: CASE EVENT DATE: 20150529
